FAERS Safety Report 8770603 (Version 2)
Quarter: 2013Q3

REPORT INFORMATION
  Report Type: Spontaneous
  Country: FR (occurrence: FR)
  Receive Date: 20120906
  Receipt Date: 20130926
  Transmission Date: 20140515
  Serious: Yes (Hospitalization, Other)
  Sender: FDA-Public Use
  Company Number: PHHY2012FR077166

PATIENT
  Age: 18 Year
  Sex: Male

DRUGS (3)
  1. MYFORTIC [Suspect]
     Dosage: 360 MG, UNK
     Route: 048
  2. SOLUPRED [Suspect]
     Dosage: 5 MG, QD
     Route: 048
     Dates: start: 201108
  3. ADVAGRAF [Suspect]
     Route: 048
     Dates: start: 201108

REACTIONS (4)
  - Papilloedema [Unknown]
  - Eye oedema [Unknown]
  - Angiopathy [Unknown]
  - Cerebral microhaemorrhage [Unknown]
